FAERS Safety Report 21984479 (Version 1)
Quarter: 2023Q1

REPORT INFORMATION
  Report Type: Spontaneous
  Country: US (occurrence: None)
  Receive Date: 20230210
  Receipt Date: 20230210
  Transmission Date: 20230418
  Serious: No
  Sender: FDA-Public Use
  Company Number: None

PATIENT
  Age: 86 Year
  Sex: Female
  Weight: 64.8 kg

DRUGS (13)
  1. LEXISCAN [Suspect]
     Active Substance: REGADENOSON
     Indication: Cardiac stress test
     Dates: start: 20230207
  2. METOPROLOL [Concomitant]
     Active Substance: METOPROLOL
  3. SIMVASTATIN [Concomitant]
     Active Substance: SIMVASTATIN
  4. AUGMENTIN [Concomitant]
     Active Substance: AMOXICILLIN\CLAVULANATE POTASSIUM
  5. B12 injections [Concomitant]
  6. SUCRALFATE [Concomitant]
     Active Substance: SUCRALFATE
  7. VOLTAREN [Concomitant]
     Active Substance: DICLOFENAC SODIUM
  8. HYDROCODONE [Concomitant]
     Active Substance: HYDROCODONE
  9. PEPCID [Concomitant]
     Active Substance: FAMOTIDINE
  10. TYLENOL [Concomitant]
     Active Substance: ACETAMINOPHEN
  11. Asterpro nasal spray [Concomitant]
  12. VITAMIN D3 [Concomitant]
     Active Substance: CHOLECALCIFEROL
  13. GasX [Concomitant]

REACTIONS (5)
  - Back pain [None]
  - Emotional distress [None]
  - Contrast media reaction [None]
  - Pain [None]
  - Pain in extremity [None]

NARRATIVE: CASE EVENT DATE: 20230207
